FAERS Safety Report 13968936 (Version 2)
Quarter: 2017Q3

REPORT INFORMATION
  Report Type: Report from Study
  Country: US (occurrence: US)
  Receive Date: 20170914
  Receipt Date: 20170928
  Transmission Date: 20171128
  Serious: Yes (Hospitalization, Other)
  Sender: FDA-Public Use
  Company Number: US-AMGEN-USASL2017138845

PATIENT
  Age: 56 Year
  Sex: Female
  Weight: 126.98 kg

DRUGS (1)
  1. ENBREL [Suspect]
     Active Substance: ETANERCEPT
     Indication: PSORIASIS
     Dosage: 50 MG, QWK
     Route: 058
     Dates: start: 201608

REACTIONS (3)
  - Pulmonary oedema [Unknown]
  - Asthma [Unknown]
  - Dehydration [Unknown]

NARRATIVE: CASE EVENT DATE: 2017
